FAERS Safety Report 7401382-9 (Version None)
Quarter: 2011Q2

REPORT INFORMATION
  Report Type: 
  Country: None (occurrence: None)
  Receive Date: 20110407
  Receipt Date: 20110405
  Transmission Date: 20111010
  Serious: Yes (Other)
  Sender: FDA-Public Use
  Company Number: NL-MERCK-1104NLD00020

PATIENT
  Age: 76 Year
  Sex: Female
  Weight: 64 kg

DRUGS (7)
  1. ZETIA [Suspect]
     Indication: HYPERCHOLESTEROLAEMIA
     Route: 048
     Dates: start: 20101223, end: 20110221
  2. METFORMIN HYDROCHLORIDE [Concomitant]
     Route: 065
  3. GLIMEPIRIDE [Concomitant]
     Route: 048
  4. PROPRANOLOL HYDROCHLORIDE [Concomitant]
     Route: 048
  5. OMEPRAZOLE [Concomitant]
     Route: 048
  6. ASPIRIN [Concomitant]
     Route: 065
  7. IRBESARTAN [Concomitant]
     Route: 048

REACTIONS (2)
  - VERTIGO [None]
  - PRESYNCOPE [None]
